FAERS Safety Report 20892775 (Version 3)
Quarter: 2022Q3

REPORT INFORMATION
  Report Type: Report from Study
  Country: ES (occurrence: None)
  Receive Date: 20220531
  Receipt Date: 20220711
  Transmission Date: 20221027
  Serious: Yes (Hospitalization)
  Sender: FDA-Public Use
  Company Number: ES-ROCHE-3033521

PATIENT
  Age: 65 Year
  Sex: Male
  Weight: 83 kg

DRUGS (30)
  1. ATEZOLIZUMAB [Suspect]
     Active Substance: ATEZOLIZUMAB
     Indication: Metastatic neoplasm
     Dosage: ON 31/JAN/2022 AT 1:27 PM, MOST RECENT DOSE OF STUDY DRUG PRIOR TO AE/SAE?ON 31/JAN/2022 AT 1:58 PM,
     Route: 041
     Dates: start: 20210906
  2. RO-7296682 [Suspect]
     Active Substance: RO-7296682
     Indication: Metastatic neoplasm
     Dosage: ON 31/JAN/2022 AT 2:58 PM, MOST RECENT DOSE OF STUDY DRUG PRIOR TO AE/SAE?ON 31/JAN/2022 AT 3:58 PM,
     Route: 042
     Dates: start: 20210906
  3. ADVENTAN [Concomitant]
     Indication: Rash
     Dosage: DOSE: 1 OTHER
     Route: 061
     Dates: start: 20211004
  4. EBASTINE [Concomitant]
     Active Substance: EBASTINE
     Indication: Rash
     Route: 048
     Dates: start: 20211004
  5. PREDNISONE [Concomitant]
     Active Substance: PREDNISONE
     Indication: Rash
     Route: 048
     Dates: start: 20211220
  6. ACETYLCYSTEINE [Concomitant]
     Active Substance: ACETYLCYSTEINE
     Indication: Cough
     Route: 048
     Dates: start: 20210927
  7. ACETYLCYSTEINE [Concomitant]
     Active Substance: ACETYLCYSTEINE
     Indication: Prophylaxis
     Route: 048
     Dates: start: 20220225
  8. ACETYLCYSTEINE [Concomitant]
     Active Substance: ACETYLCYSTEINE
     Route: 048
     Dates: start: 20220222, end: 20220225
  9. BISOLVON [Concomitant]
     Active Substance: BROMHEXINE HYDROCHLORIDE
     Indication: Cough
     Route: 048
     Dates: start: 20210927
  10. IRBESARTAN [Concomitant]
     Active Substance: IRBESARTAN
     Indication: Hypertension
     Route: 048
  11. MAGNESIUM [Concomitant]
     Active Substance: MAGNESIUM
     Indication: Hypomagnesaemia
     Route: 048
  12. MAGNESIUM [Concomitant]
     Active Substance: MAGNESIUM
     Route: 048
     Dates: start: 20220131
  13. MAGNESIUM [Concomitant]
     Active Substance: MAGNESIUM
     Route: 048
     Dates: start: 20220130
  14. RIVAROXABAN [Concomitant]
     Active Substance: RIVAROXABAN
     Indication: Anticoagulant therapy
     Route: 048
     Dates: start: 20211223, end: 20220328
  15. BEMIPARIN [Concomitant]
     Active Substance: BEMIPARIN
     Dosage: 1000 U
     Route: 030
     Dates: start: 20220131
  16. BEMIPARIN [Concomitant]
     Active Substance: BEMIPARIN
     Dosage: 3500 U
     Route: 058
     Dates: start: 20220402, end: 20220403
  17. BEMIPARIN [Concomitant]
     Active Substance: BEMIPARIN
     Dosage: 10000 U
     Route: 058
     Dates: start: 20220404
  18. LEVOFLOXACIN [Concomitant]
     Active Substance: LEVOFLOXACIN
     Indication: Respiratory failure
     Route: 042
     Dates: start: 20220331, end: 20220403
  19. LEVOFLOXACIN [Concomitant]
     Active Substance: LEVOFLOXACIN
     Route: 048
     Dates: start: 20220404, end: 20220407
  20. LEVOFLOXACIN [Concomitant]
     Active Substance: LEVOFLOXACIN
     Route: 048
     Dates: start: 20220418, end: 20220425
  21. CLAVULANIC ACID [Concomitant]
     Active Substance: CLAVULANIC ACID
     Indication: Respiratory failure
     Route: 042
     Dates: start: 20220323, end: 20220404
  22. CLAVULANIC ACID [Concomitant]
     Active Substance: CLAVULANIC ACID
     Route: 048
     Dates: start: 20220404, end: 20220408
  23. SALMETEROL [Concomitant]
     Active Substance: SALMETEROL
     Route: 055
     Dates: start: 20220408
  24. FLUTICASONE PROPIONATE [Concomitant]
     Active Substance: FLUTICASONE PROPIONATE
     Route: 055
     Dates: start: 20220408
  25. LIDOCAINE [Concomitant]
     Active Substance: LIDOCAINE
     Route: 062
     Dates: start: 20220408
  26. VILDAGLIPTIN [Concomitant]
     Active Substance: VILDAGLIPTIN
     Route: 048
     Dates: start: 20220327
  27. METFORMIN HYDROCHLORIDE [Concomitant]
     Active Substance: METFORMIN HYDROCHLORIDE
     Route: 048
     Dates: start: 20220327
  28. TRAMADOL [Concomitant]
     Active Substance: TRAMADOL
     Route: 048
     Dates: start: 20220408
  29. ACETAMINOPHEN [Concomitant]
     Active Substance: ACETAMINOPHEN
     Route: 048
     Dates: start: 20220408
  30. METAMIZOLE [Concomitant]
     Active Substance: METAMIZOLE
     Route: 048
     Dates: start: 20220408

REACTIONS (1)
  - Pneumothorax [Recovered/Resolved]

NARRATIVE: CASE EVENT DATE: 20220221
